FAERS Safety Report 19612810 (Version 1)
Quarter: 2021Q3

REPORT INFORMATION
  Report Type: Spontaneous
  Country: US (occurrence: US)
  Receive Date: 20210727
  Receipt Date: 20210727
  Transmission Date: 20211014
  Serious: Yes (Death, Hospitalization, Other)
  Sender: FDA-Public Use
  Company Number: US-AUROBINDO-AUR-APL-2021-030927

PATIENT
  Age: 33 Year
  Sex: Male

DRUGS (1)
  1. VENLAFAXINE [Suspect]
     Active Substance: VENLAFAXINE HYDROCHLORIDE
     Indication: PRODUCT USED FOR UNKNOWN INDICATION
     Dosage: 150 MILLIGRAM
     Route: 048

REACTIONS (13)
  - Cardiac arrest [Fatal]
  - Oliguria [Fatal]
  - Clonus [Fatal]
  - Hypotension [Fatal]
  - Hyperhidrosis [Fatal]
  - Toxicity to various agents [Fatal]
  - Electrocardiogram QT prolonged [Fatal]
  - Hyperthermia [Fatal]
  - Serotonin syndrome [Fatal]
  - Completed suicide [Fatal]
  - Seizure [Fatal]
  - Acidosis [Fatal]
  - Hypoxia [Fatal]
